FAERS Safety Report 8143739-7 (Version None)
Quarter: 2012Q1

REPORT INFORMATION
  Report Type: 
  Country: None (occurrence: None)
  Receive Date: 20120217
  Receipt Date: 20120210
  Transmission Date: 20120608
  Serious: Yes (Hospitalization)
  Sender: FDA-Public Use
  Company Number: US-BAYER-2011-059303

PATIENT
  Age: 34 Year
  Sex: Female
  Weight: 94.785 kg

DRUGS (6)
  1. YAZ [Suspect]
     Indication: PREMENSTRUAL SYNDROME
  2. FLEXERIL [Concomitant]
  3. SEPTRA DS [Concomitant]
     Dosage: UNK
     Dates: start: 20080501
  4. YAZ [Suspect]
     Indication: CONTRACEPTION
     Dosage: UNK
     Route: 048
     Dates: start: 20071001, end: 20080706
  5. MOTRIN SINUS HEADACHE [IBUPROFEN] [Concomitant]
  6. LYRICA [Concomitant]
     Dosage: 150 MG, BID

REACTIONS (10)
  - DYSPHEMIA [None]
  - VIITH NERVE PARALYSIS [None]
  - MEMORY IMPAIRMENT [None]
  - ANXIETY [None]
  - DYSPNOEA [None]
  - PAIN [None]
  - EMOTIONAL DISTRESS [None]
  - PULMONARY EMBOLISM [None]
  - TRANSIENT ISCHAEMIC ATTACK [None]
  - HEADACHE [None]
